FAERS Safety Report 11141126 (Version 3)
Quarter: 2015Q3

REPORT INFORMATION
  Report Type: Spontaneous
  Country: JP (occurrence: JP)
  Receive Date: 20150527
  Receipt Date: 20150724
  Transmission Date: 20151125
  Serious: Yes (Hospitalization, Other)
  Sender: FDA-Public Use
  Company Number: JP-GLAXOSMITHKLINE INC.-JP2015JPN054256

PATIENT
  Age: 7 Year
  Sex: Male
  Weight: 22 kg

DRUGS (8)
  1. PULMICORT TURBUHALER [Concomitant]
     Active Substance: BUDESONIDE
     Indication: ASTHMA
     Dosage: UNK
     Dates: start: 2015
  2. INTAL [Concomitant]
     Active Substance: CROMOLYN SODIUM
     Indication: ASTHMA
     Dosage: 1 DF, QD
  3. CALONAL [Suspect]
     Active Substance: ACETAMINOPHEN
     Dosage: 200 MG, 1D
     Route: 048
  4. SINGULAIR [Concomitant]
     Active Substance: MONTELUKAST SODIUM
     Indication: ASTHMA
     Dosage: 5 MG, QD
     Dates: start: 20141205
  5. RELENZA [Suspect]
     Active Substance: ZANAMIVIR
     Indication: INFLUENZA
     Dosage: 10 MG, BID
     Route: 055
     Dates: start: 20150419, end: 20150420
  6. ZADITEN [Concomitant]
     Active Substance: KETOTIFEN FUMARATE
     Indication: ASTHMA
     Dosage: 0.6 MG, BID
     Dates: start: 20141205
  7. ZADITEN [Concomitant]
     Active Substance: KETOTIFEN FUMARATE
     Indication: RHINITIS ALLERGIC
  8. ZADITEN [Concomitant]
     Active Substance: KETOTIFEN FUMARATE
     Indication: DERMATITIS ATOPIC

REACTIONS (9)
  - Dyspnoea [Recovered/Resolved]
  - Dehydration [Recovered/Resolved]
  - Nausea [Recovered/Resolved]
  - Cough [Recovered/Resolved]
  - Anaphylactic shock [Recovered/Resolved]
  - Pyrexia [Recovered/Resolved]
  - Flushing [Recovered/Resolved]
  - Vomiting [Recovered/Resolved]
  - Diarrhoea [Recovered/Resolved]

NARRATIVE: CASE EVENT DATE: 20150420
